FAERS Safety Report 8520013-8 (Version None)
Quarter: 2012Q2

REPORT INFORMATION
  Report Type: 
  Country: None (occurrence: None)
  Receive Date: 20120406
  Receipt Date: 20100820
  Transmission Date: 20120825
  Serious: Yes (Hospitalization, Other)
  Sender: FDA-Public Use
  Company Number: PHHY2010US57212

PATIENT
  Age: 81 Year
  Sex: Female

DRUGS (6)
  1. HYTRIN [Concomitant]
  2. PULMICORT [Concomitant]
  3. NEXIUM [Concomitant]
  4. TASIGNA [Suspect]
     Dosage: 400 MG, BID
     Dates: start: 20100701
  5. ALBUTEROL [Concomitant]
  6. COUMADIN [Concomitant]

REACTIONS (12)
  - PNEUMONIA [None]
  - ASTHENIA [None]
  - CHRONIC OBSTRUCTIVE PULMONARY DISEASE [None]
  - COUGH [None]
  - BONE PAIN [None]
  - DYSPEPSIA [None]
  - GASTROOESOPHAGEAL REFLUX DISEASE [None]
  - BRONCHITIS [None]
  - CHEST X-RAY ABNORMAL [None]
  - ATRIAL FIBRILLATION [None]
  - HEART RATE IRREGULAR [None]
  - FATIGUE [None]
